FAERS Safety Report 5411640-5 (Version None)
Quarter: 2007Q3

REPORT INFORMATION
  Report Type: 
  Country: None (occurrence: None)
  Receive Date: 20070810
  Receipt Date: 20070731
  Transmission Date: 20080115
  Serious: Yes (Hospitalization)
  Sender: FDA-Public Use
  Company Number: FR-PFIZER INC-2007064075

PATIENT
  Sex: Female

DRUGS (10)
  1. ZOLOFT [Suspect]
  2. COUMADIN [Suspect]
     Route: 048
  3. MEDIATENSYL [Concomitant]
     Route: 048
  4. LASIX [Concomitant]
     Route: 048
  5. HYPERIUM [Concomitant]
     Route: 048
  6. SERETIDE [Concomitant]
     Route: 055
  7. ESBERIVEN FORTE [Concomitant]
     Route: 048
  8. STILNOX [Concomitant]
     Route: 048
  9. ACETAMINOPHEN [Concomitant]
  10. ECONAZOLE NITRATE [Concomitant]

REACTIONS (1)
  - MENINGORRHAGIA [None]
